FAERS Safety Report 10720726 (Version 1)
Quarter: 2015Q1

REPORT INFORMATION
  Report Type: Spontaneous
  Country: US (occurrence: US)
  Receive Date: 20150119
  Receipt Date: 20150119
  Transmission Date: 20150721
  Serious: Yes (Other)
  Sender: FDA-Public Use
  Company Number: US-SA-2015SA004818

PATIENT
  Age: 58 Year
  Sex: Female

DRUGS (1)
  1. HECTOROL [Suspect]
     Active Substance: DOXERCALCIFEROL
     Indication: CHRONIC KIDNEY DISEASE
     Route: 065
     Dates: start: 201412

REACTIONS (1)
  - Blood parathyroid hormone abnormal [Not Recovered/Not Resolved]
